FAERS Safety Report 15830922 (Version 8)
Quarter: 2020Q1

REPORT INFORMATION
  Report Type: Report from Study
  Country: None (occurrence: NL)
  Receive Date: 20190116
  Receipt Date: 20200331
  Transmission Date: 20200409
  Serious: Yes (Other)
  Sender: FDA-Public Use
  Company Number: NL-ABBVIE-19S-114-2620253-00

PATIENT
  Age: 76 Year
  Sex: Male
  Weight: 75 kg

DRUGS (4)
  1. MACROGOL [Concomitant]
     Active Substance: POLYETHYLENE GLYCOLS
     Indication: PRODUCT USED FOR UNKNOWN INDICATION
  2. DUODOPA [Suspect]
     Active Substance: CARBIDOPA\LEVODOPA
     Indication: PARKINSON^S DISEASE
     Dosage: 24 HOUR ADMINISTRATION?MD 0.0, ED 0.0, CDN 1.6
     Route: 050
     Dates: start: 20150914
  3. DUODOPA [Suspect]
     Active Substance: CARBIDOPA\LEVODOPA
     Route: 050
  4. CLOZAPINE. [Concomitant]
     Active Substance: CLOZAPINE
     Indication: PRODUCT USED FOR UNKNOWN INDICATION

REACTIONS (30)
  - Memory impairment [Not Recovered/Not Resolved]
  - Restlessness [Not Recovered/Not Resolved]
  - Tremor [Not Recovered/Not Resolved]
  - Dysphagia [Not Recovered/Not Resolved]
  - Posture abnormal [Not Recovered/Not Resolved]
  - Muscle rigidity [Not Recovered/Not Resolved]
  - Fatigue [Not Recovered/Not Resolved]
  - Initial insomnia [Not Recovered/Not Resolved]
  - Off label use [Recovered/Resolved]
  - Confusional state [Not Recovered/Not Resolved]
  - Fall [Not Recovered/Not Resolved]
  - Speech disorder [Not Recovered/Not Resolved]
  - Device dislocation [Unknown]
  - Unevaluable event [Recovered/Resolved]
  - Intentional device misuse [Not Recovered/Not Resolved]
  - Anxiety [Not Recovered/Not Resolved]
  - Transient ischaemic attack [Unknown]
  - Head injury [Unknown]
  - Stoma site discharge [Recovered/Resolved]
  - Balance disorder [Not Recovered/Not Resolved]
  - Bradykinesia [Not Recovered/Not Resolved]
  - Aggression [Not Recovered/Not Resolved]
  - Scratch [Unknown]
  - Freezing phenomenon [Not Recovered/Not Resolved]
  - Stoma site erythema [Recovered/Resolved]
  - Sleep disorder [Not Recovered/Not Resolved]
  - Loss of personal independence in daily activities [Not Recovered/Not Resolved]
  - Syncope [Not Recovered/Not Resolved]
  - Hallucination [Not Recovered/Not Resolved]
  - Dyskinesia [Unknown]

NARRATIVE: CASE EVENT DATE: 201901
